FAERS Safety Report 5017827-8 (Version None)
Quarter: 2006Q2

REPORT INFORMATION
  Report Type: 
  Country: None (occurrence: None)
  Receive Date: 20060605
  Receipt Date: 20060524
  Transmission Date: 20061013
  Serious: Yes (Hospitalization, Other)
  Sender: FDA-Public Use
  Company Number: PHBS2006BR07784

PATIENT
  Age: 61 Year
  Sex: Male
  Weight: 95 kg

DRUGS (5)
  1. VASOPRIL [Concomitant]
     Indication: HYPERTENSION
     Dosage: 1 DF, QD
     Route: 048
  2. METFORMIN [Concomitant]
     Indication: DIABETES MELLITUS
     Dosage: 2 TABLETS/D
     Route: 048
  3. LUPRON [Concomitant]
     Dosage: UNK, QMO
     Route: 065
  4. ZOMETA [Suspect]
     Indication: PROSTATE CANCER
     Dosage: 4 MG, BETWEEN DAY 8 AND 10 EVERY MONTH
     Route: 065
     Dates: end: 20060405
  5. ZOLADEX [Concomitant]
     Dosage: UNK, QMO
     Route: 065
     Dates: start: 20060203, end: 20060405

REACTIONS (11)
  - BACK PAIN [None]
  - BONE DEBRIDEMENT [None]
  - GINGIVAL BLEEDING [None]
  - GINGIVAL ULCERATION [None]
  - IMPAIRED HEALING [None]
  - INFLAMMATION [None]
  - MALIGNANT NEOPLASM PROGRESSION [None]
  - PAIN IN EXTREMITY [None]
  - PROSTATIC SPECIFIC ANTIGEN INCREASED [None]
  - TOOTH EXTRACTION [None]
  - TOOTHACHE [None]
